FAERS Safety Report 5585324-7 (Version None)
Quarter: 2008Q1

REPORT INFORMATION
  Report Type: 
  Country: None (occurrence: None)
  Receive Date: 20080109
  Receipt Date: 20080103
  Transmission Date: 20080703
  Serious: Yes (Hospitalization)
  Sender: FDA-Public Use
  Company Number: GB-TEVA-165250ISR

PATIENT
  Age: 71 Year
  Sex: Male

DRUGS (2)
  1. FUROSEMIDE [Suspect]
     Indication: OEDEMA PERIPHERAL
  2. DIGOXIN [Suspect]
     Indication: ATRIAL FIBRILLATION

REACTIONS (4)
  - DRUG INTERACTION [None]
  - HYPOMAGNESAEMIA [None]
  - NAUSEA [None]
  - VOMITING [None]
